FAERS Safety Report 25428913 (Version 5)
Quarter: 2025Q3

REPORT INFORMATION
  Report Type: Report from Study
  Country: CA (occurrence: CA)
  Receive Date: 20250612
  Receipt Date: 20250728
  Transmission Date: 20251020
  Serious: Yes (Hospitalization, Other)
  Sender: TAKEDA
  Company Number: CA-TAKEDA-2025TUS054130

PATIENT
  Sex: Female
  Weight: 66.22 kg

DRUGS (6)
  1. VEDOLIZUMAB [Suspect]
     Active Substance: VEDOLIZUMAB
     Indication: Colitis ulcerative
  2. VEDOLIZUMAB [Suspect]
     Active Substance: VEDOLIZUMAB
  3. OZEMPIC [Suspect]
     Active Substance: SEMAGLUTIDE
     Indication: Product used for unknown indication
  4. PREDNISONE [Concomitant]
     Active Substance: PREDNISONE
     Dosage: 40 MILLIGRAM, QID
  5. CLOTRIMAZOLE [Concomitant]
     Active Substance: CLOTRIMAZOLE
  6. ANUSOL NOS [Concomitant]
     Active Substance: BALSAM PERU\BENZYL BENZOATE\BISMUTH HYDROXIDE\BISMUTH SUBGALLATE\HYDROCORTISONE ACETATE\ZINC OXIDE

REACTIONS (14)
  - Colitis ulcerative [Recovering/Resolving]
  - Campylobacter gastroenteritis [Unknown]
  - Escherichia bacteraemia [Unknown]
  - Pancreatitis acute [Unknown]
  - Pelvic mass [Unknown]
  - Iron deficiency anaemia [Unknown]
  - Arthritis [Unknown]
  - Aphthous ulcer [Unknown]
  - Hordeolum [Unknown]
  - Vision blurred [Unknown]
  - Dizziness [Unknown]
  - Chills [Unknown]
  - Headache [Unknown]
  - Influenza [Unknown]
